FAERS Safety Report 7993910-X (Version None)
Quarter: 2011Q4

REPORT INFORMATION
  Report Type: 
  Country: None (occurrence: None)
  Receive Date: 20111215
  Receipt Date: 20111128
  Transmission Date: 20120403
  Serious: Yes (Other)
  Sender: FDA-Public Use
  Company Number: COL_10302_2011

PATIENT
  Sex: Female

DRUGS (7)
  1. EFFEXOR XR [Concomitant]
  2. SIMAVASTATIN [Concomitant]
  3. COVERSYL /00790702/ [Concomitant]
  4. NEXIUM [Concomitant]
  5. CHLORHEXIDINE GLUCONATE [Suspect]
     Indication: POSTOPERATIVE WOUND INFECTION
     Dosage: (5 ML BID ORAL)
     Route: 048
     Dates: start: 20110701, end: 20111103
  6. CHLORHEXIDINE GLUCONATE [Suspect]
     Indication: MUCOSAL INFLAMMATION
     Dosage: (5 ML BID ORAL)
     Route: 048
     Dates: start: 20110701, end: 20111103
  7. CHLORHEXIDINE GLUCONATE [Suspect]
     Indication: GINGIVITIS
     Dosage: (5 ML BID ORAL)
     Route: 048
     Dates: start: 20110701, end: 20111103

REACTIONS (1)
  - BRONCHITIS [None]
